FAERS Safety Report 23852406 (Version 3)
Quarter: 2024Q2

REPORT INFORMATION
  Report Type: Report from Study
  Country: US (occurrence: US)
  Receive Date: 20240514
  Receipt Date: 20240606
  Transmission Date: 20240716
  Serious: Yes (Other)
  Sender: FDA-Public Use
  Company Number: US-SANDOZ-SDZ2023US022163

PATIENT
  Age: 44 Year
  Sex: Female
  Weight: 71.655 kg

DRUGS (7)
  1. TREPROSTINIL [Suspect]
     Active Substance: TREPROSTINIL
     Dosage: 65 NG/KG/ MIN
     Route: 058
     Dates: start: 20230605
  2. TREPROSTINIL [Suspect]
     Active Substance: TREPROSTINIL
     Indication: Pulmonary arterial hypertension
     Dosage: 65 NG/KG/ MIN
     Route: 058
     Dates: start: 20230605
  3. FLONASE [Concomitant]
     Active Substance: FLUTICASONE PROPIONATE
     Indication: Product used for unknown indication
     Route: 065
  4. OPSUMIT [Concomitant]
     Active Substance: MACITENTAN
     Indication: Product used for unknown indication
     Route: 065
  5. REMODULIN [Concomitant]
     Active Substance: TREPROSTINIL
     Indication: Product used for unknown indication
     Dosage: UNK
     Route: 065
  6. SILDENAFIL CITRATE [Concomitant]
     Active Substance: SILDENAFIL CITRATE
     Indication: Product used for unknown indication
     Route: 065
  7. XARELTO [Concomitant]
     Active Substance: RIVAROXABAN
     Indication: Product used for unknown indication
     Route: 065

REACTIONS (39)
  - Sinusitis [Recovering/Resolving]
  - Presyncope [Recovered/Resolved]
  - Weight decreased [Unknown]
  - Injection site haemorrhage [Unknown]
  - Migraine [Unknown]
  - Groin pain [Unknown]
  - Arthritis [Unknown]
  - Cough [Unknown]
  - Secretion discharge [Unknown]
  - Product leakage [Unknown]
  - Dyspnoea [Unknown]
  - Neck pain [Unknown]
  - Tension [Unknown]
  - Nasal congestion [Unknown]
  - Productive cough [Unknown]
  - Anosmia [Not Recovered/Not Resolved]
  - Ageusia [Not Recovered/Not Resolved]
  - Raynaud^s phenomenon [Unknown]
  - Lacrimation increased [Unknown]
  - Rhinorrhoea [Unknown]
  - Blood pressure increased [Unknown]
  - Stress [Recovering/Resolving]
  - Aphonia [Unknown]
  - Drainage [Unknown]
  - Skin discolouration [Unknown]
  - Dyspepsia [Recovering/Resolving]
  - Injection site erythema [Unknown]
  - Pain in jaw [Unknown]
  - Headache [Unknown]
  - Abdominal pain upper [Unknown]
  - Injection site pain [Unknown]
  - Arthralgia [Unknown]
  - Infusion site pain [Unknown]
  - Catheter site infection [Unknown]
  - Asthenia [Unknown]
  - Diarrhoea [Unknown]
  - Injection site pruritus [Unknown]
  - Wrong technique in product usage process [Unknown]
  - Accidental exposure to product [Unknown]

NARRATIVE: CASE EVENT DATE: 20240417
